FAERS Safety Report 5099579-9 (Version None)
Quarter: 2006Q3

REPORT INFORMATION
  Report Type: 
  Country: None (occurrence: None)
  Receive Date: 20060908
  Receipt Date: 20060830
  Transmission Date: 20061208
  Serious: Yes (Other)
  Sender: FDA-Public Use
  Company Number: PHNU2006DE02954

PATIENT
  Age: 72 Year
  Sex: Female

DRUGS (3)
  1. FORADIL [Suspect]
     Indication: PULMONARY FIBROSIS
     Dosage: 2 CAPS/DAY
     Dates: start: 20060701, end: 20060801
  2. FORADIL [Suspect]
     Dosage: 2 CAPS/DAY
     Dates: start: 20060828, end: 20060830
  3. ASPIRIN [Concomitant]
     Route: 048
     Dates: end: 20060801

REACTIONS (4)
  - CATARACT [None]
  - CATARACT OPERATION [None]
  - INTRAOCULAR PRESSURE INCREASED [None]
  - PARAESTHESIA [None]
